FAERS Safety Report 25842132 (Version 1)
Quarter: 2025Q3

REPORT INFORMATION
  Report Type: Spontaneous
  Country: US (occurrence: None)
  Receive Date: 20250924
  Receipt Date: 20250924
  Transmission Date: 20251021
  Serious: Yes (Life-Threatening, Hospitalization, Disabling, Other)
  Sender: FDA-CTU
  Company Number: None

PATIENT
  Age: 30 Year
  Sex: Male
  Weight: 72 kg

DRUGS (7)
  1. HERBALS [Suspect]
     Active Substance: HERBALS
     Indication: Anxiety
     Route: 048
  2. HERBALS [Suspect]
     Active Substance: HERBALS
     Indication: Depression
  3. HERBALS [Suspect]
     Active Substance: HERBALS
     Indication: Depression
  4. LEXAPRO [Concomitant]
     Active Substance: ESCITALOPRAM OXALATE
  5. WELLBUTRIN [Concomitant]
     Active Substance: BUPROPION HYDROCHLORIDE
  6. VIVITROL [Concomitant]
     Active Substance: NALTREXONE
  7. MELATONIN [Concomitant]
     Active Substance: MELATONIN

REACTIONS (6)
  - Substance use [None]
  - Overdose [None]
  - Generalised tonic-clonic seizure [None]
  - Tongue biting [None]
  - Medical counselling [None]
  - Dependence [None]

NARRATIVE: CASE EVENT DATE: 20250724
